FAERS Safety Report 5816397-1 (Version None)
Quarter: 2008Q3

REPORT INFORMATION
  Report Type: 
  Country: None (occurrence: None)
  Receive Date: 20080721
  Receipt Date: 20080325
  Transmission Date: 20090109
  Serious: No
  Sender: FDA-Public Use
  Company Number: US-BAUSCH-2008BL001314

PATIENT
  Sex: Female

DRUGS (3)
  1. OPCON-A [Suspect]
     Indication: EYE ALLERGY
     Route: 047
     Dates: start: 20051201
  2. NASONEX [Concomitant]
     Indication: SEASONAL ALLERGY
     Route: 045
  3. ALBUTEROL [Concomitant]
     Indication: BRONCHITIS CHRONIC
     Route: 049

REACTIONS (3)
  - DRUG INEFFECTIVE [None]
  - EYE PAIN [None]
  - VISION BLURRED [None]
